FAERS Safety Report 9559807 (Version 1)
Quarter: 2013Q3

REPORT INFORMATION
  Report Type: Spontaneous
  Country: GB (occurrence: GB)
  Receive Date: 20130927
  Receipt Date: 20130927
  Transmission Date: 20140515
  Serious: Yes (Hospitalization, Other)
  Sender: FDA-Public Use
  Company Number: GB-BAYER-2013-113235

PATIENT
  Age: 86 Year
  Sex: Male

DRUGS (4)
  1. CIPROFLOXACIN [Suspect]
     Indication: LIVER ABSCESS
     Dosage: 800MG/DAY ORAL, JUST OVER 6 WEEKS
     Route: 048
  2. METRONIDAZOLE [Suspect]
     Indication: LIVER ABSCESS
     Dosage: 1.5 G/DAY ORAL, JUST OVER 6 WEEKS
     Route: 048
  3. DIGOXIN [DIGOXIN] [Concomitant]
     Dosage: UNK
  4. VIT K ANTAGONISTS [Concomitant]
     Dosage: UNK

REACTIONS (12)
  - Central nervous system lesion [Not Recovered/Not Resolved]
  - Axonal neuropathy [Not Recovered/Not Resolved]
  - Cerebellar ataxia [Not Recovered/Not Resolved]
  - Cerebellar syndrome [Not Recovered/Not Resolved]
  - Cerebral small vessel ischaemic disease [Not Recovered/Not Resolved]
  - Diplopia [Not Recovered/Not Resolved]
  - Dysarthria [Not Recovered/Not Resolved]
  - Dysstasia [Not Recovered/Not Resolved]
  - Nystagmus [Not Recovered/Not Resolved]
  - Ocular dysmetria [Not Recovered/Not Resolved]
  - Peripheral sensory neuropathy [Not Recovered/Not Resolved]
  - Areflexia [Not Recovered/Not Resolved]
